FAERS Safety Report 5930313-3 (Version None)
Quarter: 2008Q4

REPORT INFORMATION
  Report Type: 
  Country: None (occurrence: None)
  Receive Date: 20081024
  Receipt Date: 20081021
  Transmission Date: 20090506
  Serious: Yes (Other)
  Sender: FDA-Public Use
  Company Number: US-MERCK-0810USA02139

PATIENT
  Age: 50 Year
  Sex: Female

DRUGS (7)
  1. SINGULAIR [Suspect]
     Indication: RHINITIS ALLERGIC
     Route: 048
     Dates: start: 20080812, end: 20081009
  2. PROZAC [Concomitant]
     Route: 065
  3. SYNTHROID [Concomitant]
     Route: 065
  4. ARMOUR THYROID TABLETS [Concomitant]
     Route: 065
  5. ESTRADIOL [Concomitant]
     Route: 065
  6. PROGESTERONE [Concomitant]
     Route: 065
  7. NASACORT [Concomitant]
     Route: 065

REACTIONS (3)
  - DEPRESSION [None]
  - FEELING OF DESPAIR [None]
  - SUICIDAL IDEATION [None]
